FAERS Safety Report 9785037 (Version 2)
Quarter: 2014Q1

REPORT INFORMATION
  Report Type: Spontaneous
  Country: FR (occurrence: FR)
  Receive Date: 20131227
  Receipt Date: 20140127
  Transmission Date: 20141002
  Serious: Yes (Other)
  Sender: FDA-Public Use
  Company Number: FR-009507513-1312FRA007689

PATIENT
  Age: 84 Year
  Sex: Male

DRUGS (1)
  1. TIENAM 500MG/500MG, POUDRE POUR PERFUSION [Suspect]
     Indication: LUNG DISORDER
     Dosage: UNK
     Route: 042
     Dates: end: 20130621

REACTIONS (1)
  - Agitation [Recovered/Resolved]
